FAERS Safety Report 18628606 (Version 2)
Quarter: 2021Q1

REPORT INFORMATION
  Report Type: Spontaneous
  Country: DE (occurrence: DE)
  Receive Date: 20201217
  Receipt Date: 20210122
  Transmission Date: 20210419
  Serious: Yes (Hospitalization)
  Sender: FDA-Public Use
  Company Number: DE-TEVA-2020-DE-1859415

PATIENT
  Age: 76 Year
  Sex: Male

DRUGS (1)
  1. VIGIL 100 MG TABLETTEN [Suspect]
     Active Substance: MODAFINIL
     Indication: FATIGUE
     Dosage: USED FOR A LONG TIME, SINCE THE LAST MONTHS HE TOOK ALMOST DAILY ONE TABLET IN THE MORNING
     Route: 048

REACTIONS (3)
  - Pain in extremity [Not Recovered/Not Resolved]
  - Oedema peripheral [Recovering/Resolving]
  - Peripheral swelling [Recovering/Resolving]

NARRATIVE: CASE EVENT DATE: 202010
